FAERS Safety Report 14388473 (Version 1)
Quarter: 2018Q1

REPORT INFORMATION
  Report Type: Spontaneous
  Country: FR (occurrence: FR)
  Receive Date: 20180115
  Receipt Date: 20180115
  Transmission Date: 20180509
  Serious: Yes (Hospitalization)
  Sender: FDA-Public Use
  Company Number: FR-009507513-1801FRA002699

PATIENT
  Sex: Female

DRUGS (3)
  1. LOSARTAN POTASSIUM. [Suspect]
     Active Substance: LOSARTAN POTASSIUM
     Indication: WRONG PATIENT RECEIVED MEDICATION
     Dosage: IN TOTAL
     Route: 048
     Dates: start: 20171121, end: 20171121
  2. LOXEN (NICARDIPINE HYDROCHLORIDE) [Suspect]
     Active Substance: NICARDIPINE HYDROCHLORIDE
     Indication: WRONG PATIENT RECEIVED MEDICATION
     Dosage: IN TOTAL
     Route: 048
     Dates: start: 20171121, end: 20171121
  3. CELIPROLOL HYDROCHLORIDE [Suspect]
     Active Substance: CELIPROLOL HYDROCHLORIDE
     Indication: WRONG PATIENT RECEIVED MEDICATION
     Dosage: IN TOTAL
     Route: 048
     Dates: start: 20171121, end: 20171121

REACTIONS (2)
  - Wrong patient received medication [Recovered/Resolved]
  - Hypotension [Recovered/Resolved]

NARRATIVE: CASE EVENT DATE: 20171121
